FAERS Safety Report 24708507 (Version 1)
Quarter: 2024Q4

REPORT INFORMATION
  Report Type: Spontaneous
  Country: GB (occurrence: GB)
  Receive Date: 20241207
  Receipt Date: 20241207
  Transmission Date: 20250115
  Serious: Yes (Hospitalization, Other)
  Sender: CELLTRION
  Company Number: GB-CELLTRION INC.-2024GB030831

PATIENT

DRUGS (1)
  1. YUFLYMA [Suspect]
     Active Substance: ADALIMUMAB-AATY
     Indication: Rheumatoid arthritis
     Dosage: 40 MG PEN PK2
     Route: 058
     Dates: start: 202401

REACTIONS (2)
  - Intestinal perforation [Unknown]
  - Intentional dose omission [Unknown]
